FAERS Safety Report 8446095-X (Version None)
Quarter: 2012Q2

REPORT INFORMATION
  Report Type: 
  Country: None (occurrence: None)
  Receive Date: 20120618
  Receipt Date: 20120614
  Transmission Date: 20120825
  Serious: Yes (Other)
  Sender: FDA-Public Use
  Company Number: GB-PFIZER INC-2012144428

PATIENT

DRUGS (1)
  1. SERTRALINE HYDROCHLORIDE [Suspect]
     Dosage: 100 MG, UNK
     Route: 064

REACTIONS (3)
  - HYDROCEPHALUS [None]
  - BRAIN INJURY [None]
  - MATERNAL EXPOSURE TIMING UNSPECIFIED [None]
